FAERS Safety Report 8885566 (Version 1)
Quarter: 2012Q4

REPORT INFORMATION
  Report Type: 
  Country: US (occurrence: US)
  Receive Date: 20121101
  Receipt Date: 20121101
  Transmission Date: 20130627
  Serious: No
  Sender: FDA-Public Use
  Company Number: US-009507513-1210USA011137

PATIENT
  Sex: Female

DRUGS (1)
  1. DORZOLAMIDE HYDROCHLORIDE [Suspect]
     Dosage: UNK
     Route: 047

REACTIONS (3)
  - Overdose [Unknown]
  - Product dropper issue [Unknown]
  - No adverse event [Unknown]
